FAERS Safety Report 14805051 (Version 1)
Quarter: 2018Q2

REPORT INFORMATION
  Report Type: Spontaneous
  Country: US (occurrence: US)
  Receive Date: 20180425
  Receipt Date: 20180425
  Transmission Date: 20180711
  Serious: No
  Sender: FDA-Public Use
  Company Number: US-APOTEX-2018AP007821

PATIENT

DRUGS (6)
  1. LEVAQUIN [Suspect]
     Active Substance: LEVOFLOXACIN
     Indication: ANTIBIOTIC THERAPY
     Route: 065
  2. PAROXETINE. [Suspect]
     Active Substance: PAROXETINE
     Indication: DEPRESSION
     Route: 065
  3. GLIPIZIDE. [Suspect]
     Active Substance: GLIPIZIDE
     Indication: DIABETES MELLITUS
     Route: 065
  4. METFORMIN [Suspect]
     Active Substance: METFORMIN HYDROCHLORIDE
     Indication: DIABETES MELLITUS
     Route: 065
  5. ZITHROMAX [Suspect]
     Active Substance: AZITHROMYCIN DIHYDRATE
     Indication: ANTIBIOTIC THERAPY
     Route: 065
  6. BENAZEPRIL [Suspect]
     Active Substance: BENAZEPRIL HYDROCHLORIDE
     Indication: HYPERTENSION
     Route: 065

REACTIONS (1)
  - Palpitations [Unknown]
